FAERS Safety Report 5300294-4 (Version None)
Quarter: 2007Q2

REPORT INFORMATION
  Report Type: 
  Country: None (occurrence: None)
  Receive Date: 20070418
  Receipt Date: 20070413
  Transmission Date: 20071010
  Serious: Yes (Other)
  Sender: FDA-Public Use
  Company Number: JP-BRISTOL-MYERS SQUIBB COMPANY-13747845

PATIENT
  Age: 34 Year
  Sex: Male

DRUGS (5)
  1. ISONIAZID [Suspect]
     Indication: PULMONARY TUBERCULOSIS
  2. STREPTOMYCIN [Suspect]
     Indication: PULMONARY TUBERCULOSIS
  3. ETHAMBUTOL HYDROCHLORIDE [Suspect]
     Indication: PULMONARY TUBERCULOSIS
  4. RIFAMPICIN [Suspect]
     Indication: PULMONARY TUBERCULOSIS
  5. CORTICOSTEROID [Suspect]
     Indication: PULMONARY TUBERCULOSIS

REACTIONS (1)
  - HENOCH-SCHONLEIN PURPURA [None]
